FAERS Safety Report 7646489-6 (Version None)
Quarter: 2011Q3

REPORT INFORMATION
  Report Type: 
  Country: None (occurrence: None)
  Receive Date: 20110801
  Receipt Date: 20110721
  Transmission Date: 20111222
  Serious: No
  Sender: FDA-Public Use
  Company Number: US-JNJFOC-20110709504

PATIENT
  Sex: Female

DRUGS (5)
  1. TOPAMAX [Concomitant]
     Route: 065
  2. PERPHENAZINE [Concomitant]
     Route: 065
  3. INVEGA SUSTENNA [Suspect]
     Indication: PRODUCT USED FOR UNKNOWN INDICATION
     Route: 030
  4. BENZTROPINE MESYLATE [Concomitant]
     Route: 065
  5. CLONAZEPAM [Concomitant]
     Route: 065

REACTIONS (4)
  - PRODUCT QUALITY ISSUE [None]
  - DEVICE BREAKAGE [None]
  - DEVICE LEAKAGE [None]
  - DRUG DOSE OMISSION [None]
